FAERS Safety Report 12698715 (Version 1)
Quarter: 2016Q3

REPORT INFORMATION
  Report Type: Report from Study
  Country: US (occurrence: US)
  Receive Date: 20160830
  Receipt Date: 20160830
  Transmission Date: 20161109
  Serious: Yes (Death, Hospitalization)
  Sender: FDA-Public Use
  Company Number: US-SA-2016SA037520

PATIENT
  Age: 75 Year
  Sex: Male

DRUGS (4)
  1. CAMPATH [Suspect]
     Active Substance: ALEMTUZUMAB
     Indication: T-CELL PROLYMPHOCYTIC LEUKAEMIA
     Route: 065
     Dates: start: 2016, end: 2016
  2. FAMCICLOVIR. [Concomitant]
     Active Substance: FAMCICLOVIR
     Indication: PROPHYLAXIS
  3. CAMPATH [Suspect]
     Active Substance: ALEMTUZUMAB
     Indication: T-CELL PROLYMPHOCYTIC LEUKAEMIA
     Route: 065
     Dates: start: 2016, end: 2016
  4. BACTRIM [Concomitant]
     Active Substance: SULFAMETHOXAZOLE\TRIMETHOPRIM
     Indication: PROPHYLAXIS

REACTIONS (20)
  - Hepatosplenomegaly [Unknown]
  - Pyrexia [Unknown]
  - Thrombocytopenia [Unknown]
  - Acidosis [Unknown]
  - Hyperlipidaemia [Unknown]
  - Hyperkalaemia [Unknown]
  - Chest X-ray abnormal [Unknown]
  - Death [Fatal]
  - Lymphadenopathy [Unknown]
  - Atrial fibrillation [Unknown]
  - Hypertension [Unknown]
  - Abdominal pain [Unknown]
  - Hypotension [Unknown]
  - Pleural effusion [Unknown]
  - Oedema peripheral [Unknown]
  - Septic shock [Unknown]
  - Tachycardia [Unknown]
  - Respiratory failure [Unknown]
  - Acute kidney injury [Not Recovered/Not Resolved]
  - Infection [Unknown]

NARRATIVE: CASE EVENT DATE: 20160217
